FAERS Safety Report 14634628 (Version 1)
Quarter: 2018Q1

REPORT INFORMATION
  Report Type: Spontaneous
  Country: US (occurrence: US)
  Receive Date: 20180313
  Receipt Date: 20180313
  Transmission Date: 20180509
  Serious: No
  Sender: FDA-Public Use
  Company Number: None

PATIENT
  Age: 27 Year
  Sex: Female

DRUGS (1)
  1. AVONEX [Suspect]
     Active Substance: INTERFERON BETA-1A
     Indication: MULTIPLE SCLEROSIS
     Route: 030
     Dates: start: 20170713

REACTIONS (4)
  - Photosensitivity reaction [None]
  - Sunburn [None]
  - Blister [None]
  - Headache [None]

NARRATIVE: CASE EVENT DATE: 20180206
